FAERS Safety Report 14475525 (Version 1)
Quarter: 2018Q1

REPORT INFORMATION
  Report Type: Report from Study
  Country: JP (occurrence: JP)
  Receive Date: 20180201
  Receipt Date: 20180201
  Transmission Date: 20180509
  Serious: Yes (Hospitalization)
  Sender: FDA-Public Use
  Company Number: JP-DSJP-DSJ-2017-155023

PATIENT

DRUGS (14)
  1. MAINTATE [Concomitant]
     Active Substance: BISOPROLOL FUMARATE
     Dosage: 1.25MG/DAY
     Route: 048
  2. LUPRAC [Concomitant]
     Active Substance: TORSEMIDE
     Dosage: 2MG/DAY
     Route: 048
     Dates: start: 20160106, end: 20161115
  3. LIPITOR [Concomitant]
     Active Substance: ATORVASTATIN CALCIUM
     Dosage: 5MG/DAY
     Route: 048
  4. OMEPRAL                            /00661201/ [Concomitant]
     Active Substance: OMEPRAZOLE
     Dosage: 10MG/DAY
     Route: 048
  5. ALDACTONE [Concomitant]
     Active Substance: SPIRONOLACTONE
     Dosage: 12.5MG/DAY
     Route: 048
     Dates: start: 20161116
  6. SOLITA-T3 [Concomitant]
     Active Substance: POTASSIUM CHLORIDE\SODIUM CHLORIDE\SODIUM LACTATE
     Dosage: 500ML/DAY
     Route: 042
     Dates: start: 20170509, end: 20170509
  7. SOLITA-T4 [Concomitant]
     Dosage: 500ML/DAY
     Route: 042
     Dates: start: 20170509, end: 20170509
  8. TOPILORIC [Concomitant]
     Active Substance: TOPIROXOSTAT
     Dosage: 20MG/DAY
     Route: 048
     Dates: start: 20170119, end: 20170208
  9. ZYRTEC [Concomitant]
     Active Substance: CETIRIZINE HYDROCHLORIDE
     Dosage: 10MG/DAY
     Route: 048
     Dates: start: 20160204, end: 20160510
  10. DIART [Suspect]
     Active Substance: AZOSEMIDE
     Dosage: 15MG/DAY
     Route: 048
     Dates: start: 20170502
  11. EDOXABAN [Suspect]
     Active Substance: EDOXABAN TOSYLATE
     Indication: ATRIAL FIBRILLATION
     Dosage: 30 MG, QD
     Route: 048
     Dates: start: 20150907
  12. ZYRTEC [Concomitant]
     Active Substance: CETIRIZINE HYDROCHLORIDE
     Dosage: 10MG/DAY
     Route: 048
     Dates: start: 20170224
  13. TOPILORIC [Concomitant]
     Active Substance: TOPIROXOSTAT
     Dosage: 40MG/DAY
     Route: 048
     Dates: start: 20170209
  14. DIART [Suspect]
     Active Substance: AZOSEMIDE
     Dosage: 30MG/DAY
     Route: 048
     Dates: start: 20161116, end: 20170501

REACTIONS (6)
  - Renal impairment [Recovered/Resolved]
  - Gastrointestinal haemorrhage [Recovered/Resolved]
  - Cardiac failure [Recovering/Resolving]
  - Hyperuricaemia [Recovered/Resolved]
  - Dehydration [Recovered/Resolved]
  - Renal impairment [Recovering/Resolving]

NARRATIVE: CASE EVENT DATE: 20161112
